FAERS Safety Report 7679672-4 (Version None)
Quarter: 2011Q3

REPORT INFORMATION
  Report Type: 
  Country: None (occurrence: None)
  Receive Date: 20110812
  Receipt Date: 20110810
  Transmission Date: 20111222
  Serious: Yes (Hospitalization)
  Sender: FDA-Public Use
  Company Number: JP-B.I. PHARMACEUTICALS,INC./RIDGEFIELD-2011-BP-16855NB

PATIENT
  Age: 79 Year
  Sex: Male

DRUGS (5)
  1. OLMESARTAN MEDOXOMIL [Concomitant]
     Indication: HYPERTENSION
     Route: 048
  2. PRADAXA [Suspect]
     Indication: ATRIAL FIBRILLATION
     Dosage: 220 MG
     Route: 048
     Dates: start: 20110615, end: 20110627
  3. LASIX [Concomitant]
     Indication: HYPERTENSION
     Route: 048
  4. CARVEDILOL [Concomitant]
     Indication: HYPERTENSION
     Route: 048
  5. ASPIRIN [Suspect]
     Indication: CEREBRAL INFARCTION
     Route: 048

REACTIONS (3)
  - GASTROINTESTINAL DISORDER [None]
  - OCCULT BLOOD POSITIVE [None]
  - DRUG INTERACTION [None]
